FAERS Safety Report 5850514-2 (Version None)
Quarter: 2008Q3

REPORT INFORMATION
  Report Type: 
  Country: None (occurrence: None)
  Receive Date: 20080818
  Receipt Date: 20080814
  Transmission Date: 20090109
  Serious: Yes (Hospitalization, Other)
  Sender: FDA-Public Use
  Company Number: 2008SP016470

PATIENT
  Age: 61 Year
  Sex: Female

DRUGS (10)
  1. RIBAVIRIN [Suspect]
     Indication: HEPATITIS C
     Dosage: 1200 MG; QD;
     Dates: start: 20070525
  2. INFERGEN [Suspect]
     Dosage: 15 MCG; QD;
     Dates: start: 20070601, end: 20071101
  3. PROCRIT [Suspect]
     Indication: ANAEMIA
  4. REPAGLINIDE [Concomitant]
  5. LANTUS [Concomitant]
  6. VALSARTAN [Concomitant]
  7. AMLODIPINE BESYLATE [Concomitant]
  8. CEPHALEXIN MONOHYDRATE [Concomitant]
  9. PROCRIT [Concomitant]
  10. ZOLPIDEM TARTRATE [Concomitant]

REACTIONS (7)
  - AMNESIA [None]
  - ANAEMIA [None]
  - ATRIOVENTRICULAR BLOCK FIRST DEGREE [None]
  - FATIGUE [None]
  - LOSS OF CONSCIOUSNESS [None]
  - MACROANGIOPATHY [None]
  - SYNCOPE [None]
